FAERS Safety Report 5702712-6 (Version None)
Quarter: 2008Q2

REPORT INFORMATION
  Report Type: 
  Country: None (occurrence: None)
  Receive Date: 20080411
  Receipt Date: 20080407
  Transmission Date: 20081010
  Serious: Yes (Hospitalization)
  Sender: FDA-Public Use
  Company Number: A0721374A

PATIENT
  Age: 75 Year
  Sex: Female

DRUGS (3)
  1. LANOXIN [Suspect]
     Indication: ARRHYTHMIA
     Dosage: 125MCG VARIABLE DOSE
     Route: 048
  2. VERAPAMIL [Concomitant]
  3. TOPROL-XL [Concomitant]

REACTIONS (4)
  - CONFUSIONAL STATE [None]
  - HALLUCINATION [None]
  - MEMORY IMPAIRMENT [None]
  - PNEUMONIA [None]
